FAERS Safety Report 21090494 (Version 2)
Quarter: 2022Q3

REPORT INFORMATION
  Report Type: Spontaneous
  Country: US (occurrence: US)
  Receive Date: 20220715
  Receipt Date: 20220725
  Transmission Date: 20221026
  Serious: No
  Sender: FDA-Public Use
  Company Number: US-BIOMARINAP-US-2022-144369

PATIENT

DRUGS (1)
  1. NAGLAZYME [Suspect]
     Active Substance: GALSULFASE
     Indication: Product used for unknown indication
     Route: 065

REACTIONS (3)
  - Fall [Unknown]
  - Skin abrasion [Unknown]
  - Scab [Unknown]
